FAERS Safety Report 8582818-7 (Version None)
Quarter: 2012Q3

REPORT INFORMATION
  Report Type: 
  Country: None (occurrence: None)
  Receive Date: 20120809
  Receipt Date: 20120731
  Transmission Date: 20120928
  Serious: Yes (Hospitalization, Congenital Anomaly, Other)
  Sender: FDA-Public Use
  Company Number: US-JNJFOC-20120701864

PATIENT
  Sex: Male

DRUGS (6)
  1. TYLENOL [Suspect]
     Indication: FOETAL EXPOSURE DURING PREGNANCY
     Route: 064
  2. TYLENOL [Suspect]
     Route: 064
  3. FOLIC ACID [Concomitant]
     Route: 065
  4. TOPAMAX [Suspect]
     Indication: FOETAL EXPOSURE DURING PREGNANCY
     Route: 064
  5. MULTI-VITAMINS [Concomitant]
     Route: 065
  6. HYDROCODONE BITARTRATE [Suspect]
     Indication: FOETAL EXPOSURE DURING PREGNANCY
     Route: 064

REACTIONS (6)
  - DEVELOPMENTAL DELAY [None]
  - HYPOGLYCAEMIA [None]
  - VENTRICULAR SEPTAL DEFECT [None]
  - PATENT DUCTUS ARTERIOSUS [None]
  - PREMATURE BABY [None]
  - COARCTATION OF THE AORTA [None]
